FAERS Safety Report 8233685-2 (Version None)
Quarter: 2012Q1

REPORT INFORMATION
  Report Type: 
  Country: None (occurrence: None)
  Receive Date: 20120326
  Receipt Date: 20120321
  Transmission Date: 20120608
  Serious: Yes (Hospitalization)
  Sender: FDA-Public Use
  Company Number: PHHY2012JP025072

PATIENT
  Age: 84 Year
  Sex: Female

DRUGS (3)
  1. EXELON [Suspect]
     Indication: DEMENTIA ALZHEIMER'S TYPE
     Route: 062
     Dates: start: 20110801
  2. EXELON [Suspect]
     Dosage: 18 MG, DAILY
     Route: 062
     Dates: start: 20120131, end: 20120201
  3. EXELON [Suspect]
     Dosage: 4.5 MG, DAILY
     Route: 062
     Dates: start: 20120228

REACTIONS (1)
  - SYNCOPE [None]
